FAERS Safety Report 18111510 (Version 13)
Quarter: 2023Q1

REPORT INFORMATION
  Report Type: Report from Study
  Country: CA (occurrence: CA)
  Receive Date: 20200804
  Receipt Date: 20230320
  Transmission Date: 20230418
  Serious: Yes (Other)
  Sender: FDA-Public Use
  Company Number: PHHY2017CA174529

PATIENT
  Age: 7 Year
  Sex: Male

DRUGS (11)
  1. ILARIS [Suspect]
     Active Substance: CANAKINUMAB
     Indication: Muckle-Wells syndrome
     Dosage: 135 MG, EVERY 6 WEEKS (VIALS)
     Route: 058
     Dates: start: 20170313
  2. ILARIS [Suspect]
     Active Substance: CANAKINUMAB
     Dosage: 80 MG, EVERY 8 WEEKS
     Route: 065
     Dates: start: 20180129
  3. ILARIS [Suspect]
     Active Substance: CANAKINUMAB
     Dosage: 80 MG, EVERY 8 WEEKS
     Route: 065
     Dates: start: 201808
  4. ILARIS [Suspect]
     Active Substance: CANAKINUMAB
     Dosage: UNK
     Route: 065
     Dates: start: 20181008
  5. ILARIS [Suspect]
     Active Substance: CANAKINUMAB
     Dosage: 79 MG, EVERY 8 WEEK
     Route: 058
     Dates: start: 20190407
  6. ILARIS [Suspect]
     Active Substance: CANAKINUMAB
     Dosage: 100 MG, EVERY 6 WEEK
     Route: 058
     Dates: start: 20190519
  7. ILARIS [Suspect]
     Active Substance: CANAKINUMAB
     Dosage: UNK
     Route: 065
     Dates: start: 20201004
  8. ILARIS [Suspect]
     Active Substance: CANAKINUMAB
     Dosage: 150 MG, EVERY 6 WEEK
     Route: 058
  9. ILARIS [Suspect]
     Active Substance: CANAKINUMAB
     Dosage: 150 MG, EVERY 6 WEEK
     Route: 058
     Dates: start: 20230305
  10. COLCHICINE [Concomitant]
     Active Substance: COLCHICINE
     Indication: Product used for unknown indication
     Dosage: 1 DOSAGE FORM, BID (STRENGTH: 0.6 MG)
     Route: 065
     Dates: start: 20180814
  11. COLCHICINE [Concomitant]
     Active Substance: COLCHICINE
     Dosage: UNK, OTHER (STRENGTH: 0.6 + 0.9 MG)
     Route: 048
     Dates: start: 2020

REACTIONS (39)
  - Serum amyloid A protein increased [Unknown]
  - Autism spectrum disorder [Unknown]
  - Muckle-Wells syndrome [Unknown]
  - Conductive deafness [Unknown]
  - Condition aggravated [Unknown]
  - Stiff leg syndrome [Unknown]
  - Vomiting [Unknown]
  - Stress [Unknown]
  - Fear of injection [Unknown]
  - Mouth ulceration [Not Recovered/Not Resolved]
  - Oropharyngeal pain [Unknown]
  - Muscular weakness [Recovered/Resolved]
  - Pain in extremity [Recovered/Resolved]
  - Lymphadenopathy [Unknown]
  - Lymphocyte count increased [Unknown]
  - Pain in extremity [Unknown]
  - Anxiety [Unknown]
  - Discomfort [Unknown]
  - Pyrexia [Recovering/Resolving]
  - Visual impairment [Unknown]
  - Vision blurred [Unknown]
  - Illness [Unknown]
  - Attention deficit hyperactivity disorder [Unknown]
  - Obsessive-compulsive disorder [Unknown]
  - Arthralgia [Unknown]
  - Tonsillitis [Unknown]
  - Myalgia [Unknown]
  - Limb discomfort [Unknown]
  - Nasopharyngitis [Recovering/Resolving]
  - Furuncle [Recovering/Resolving]
  - Infection [Unknown]
  - Influenza [Recovered/Resolved]
  - COVID-19 [Unknown]
  - Rhinorrhoea [Unknown]
  - Fatigue [Unknown]
  - Cough [Unknown]
  - Inappropriate schedule of product administration [Unknown]
  - Product packaging quantity issue [Unknown]
  - Drug ineffective [Unknown]

NARRATIVE: CASE EVENT DATE: 20170101
